FAERS Safety Report 4703109-8 (Version None)
Quarter: 2005Q2

REPORT INFORMATION
  Report Type: 
  Country: None (occurrence: None)
  Receive Date: 20050629
  Receipt Date: 20050517
  Transmission Date: 20051028
  Serious: Yes (Other)
  Sender: FDA-Public Use
  Company Number: US-GLAXOSMITHKLINE-A0559386A

PATIENT
  Age: 53 Year
  Sex: Female
  Weight: 72.7 kg

DRUGS (3)
  1. PAXIL CR [Suspect]
     Dosage: 25MG UNKNOWN
     Route: 048
     Dates: start: 20031001, end: 20050401
  2. PAXIL [Concomitant]
     Dosage: 40MG PER DAY
     Route: 048
     Dates: start: 20050501
  3. EFFEXOR [Concomitant]
     Indication: MOOD SWINGS
     Dosage: 75MG UNKNOWN
     Route: 048
     Dates: start: 20050401

REACTIONS (15)
  - CONVULSION [None]
  - DEPRESSED MOOD [None]
  - DRUG WITHDRAWAL SYNDROME [None]
  - FEELING JITTERY [None]
  - HEADACHE [None]
  - HOT FLUSH [None]
  - HYPERVENTILATION [None]
  - MUSCLE TWITCHING [None]
  - NAUSEA [None]
  - NERVOUSNESS [None]
  - PANIC ATTACK [None]
  - PHARMACEUTICAL PRODUCT COMPLAINT [None]
  - SUICIDAL IDEATION [None]
  - TEARFULNESS [None]
  - TREMOR [None]
